FAERS Safety Report 14482157 (Version 1)
Quarter: 2018Q1

REPORT INFORMATION
  Report Type: Report from Study
  Country: US (occurrence: US)
  Receive Date: 20180202
  Receipt Date: 20180202
  Transmission Date: 20180509
  Serious: Yes (Hospitalization)
  Sender: FDA-Public Use
  Company Number: US-ACTELION-A-US2018-166835

PATIENT
  Age: 61 Year
  Sex: Female

DRUGS (27)
  1. ASPIRIN. [Concomitant]
     Active Substance: ASPIRIN
  2. MAGNESIUM OXIDE. [Concomitant]
     Active Substance: MAGNESIUM OXIDE
  3. POTASSIUM CHLORIDE. [Concomitant]
     Active Substance: POTASSIUM CHLORIDE
  4. SILDENAFIL. [Concomitant]
     Active Substance: SILDENAFIL
  5. TEMAZEPAM. [Concomitant]
     Active Substance: TEMAZEPAM
  6. VITAMIN B COMPLEX/B12 [Concomitant]
  7. FISH OIL [Concomitant]
     Active Substance: FISH OIL
  8. LOVENOX [Concomitant]
     Active Substance: ENOXAPARIN SODIUM
  9. METOCLOPRAM [Concomitant]
     Active Substance: METOCLOPRAMIDE
  10. NYSTATIN. [Concomitant]
     Active Substance: NYSTATIN
  11. OPSUMIT [Suspect]
     Active Substance: MACITENTAN
     Indication: PULMONARY ARTERIAL HYPERTENSION
     Dosage: 10 MG, QD
     Route: 048
     Dates: start: 20160420
  12. FLUTICASONE. [Concomitant]
     Active Substance: FLUTICASONE
  13. LEVOTHYROXIN [Concomitant]
     Active Substance: LEVOTHYROXINE
  14. PROBIOTIC [Concomitant]
     Active Substance: PROBIOTICS NOS
  15. REMODULIN [Concomitant]
     Active Substance: TREPROSTINIL
  16. FUROSEMIDE. [Concomitant]
     Active Substance: FUROSEMIDE
  17. DOK [Concomitant]
     Active Substance: DOCUSATE SODIUM
  18. LIOTHYRONINE [Concomitant]
     Active Substance: LIOTHYRONINE
  19. OMEGA 3 [Concomitant]
     Active Substance: OMEGA-3 FATTY ACIDS
  20. PILOCARPINE. [Concomitant]
     Active Substance: PILOCARPINE
  21. SPIRONOLACTONE. [Concomitant]
     Active Substance: SPIRONOLACTONE
  22. AMOXICILLIN AND CLAVULANATE POTASSIUM [Concomitant]
     Active Substance: AMOXICILLIN\CLAVULANATE POTASSIUM
  23. VITAMIN D3 [Concomitant]
     Active Substance: CHOLECALCIFEROL
  24. DULOXETINE. [Concomitant]
     Active Substance: DULOXETINE
  25. FLUCONAZOLE. [Concomitant]
     Active Substance: FLUCONAZOLE
  26. LIDOCAINE. [Concomitant]
     Active Substance: LIDOCAINE
  27. OMEPRAZOLE. [Concomitant]
     Active Substance: OMEPRAZOLE

REACTIONS (1)
  - Gallbladder operation [Not Recovered/Not Resolved]

NARRATIVE: CASE EVENT DATE: 201801
